FAERS Safety Report 6228536-1 (Version None)
Quarter: 2009Q2

REPORT INFORMATION
  Report Type: 
  Country: None (occurrence: None)
  Receive Date: 20090612
  Receipt Date: 20090603
  Transmission Date: 20091009
  Serious: Yes (Other)
  Sender: FDA-Public Use
  Company Number: PHEH2009US05687

PATIENT
  Sex: Male

DRUGS (1)
  1. GENTEAL (NVO) [Suspect]

REACTIONS (1)
  - CORNEAL ABRASION [None]
